FAERS Safety Report 6608366-9 (Version None)
Quarter: 2010Q1

REPORT INFORMATION
  Report Type: 
  Country: None (occurrence: None)
  Receive Date: 20100301
  Receipt Date: 20100217
  Transmission Date: 20100710
  Serious: Yes (Life-Threatening, Hospitalization)
  Sender: FDA-Public Use
  Company Number: JP-PFIZER INC-2009312651

PATIENT
  Age: 67 Year
  Sex: Male
  Weight: 45.4 kg

DRUGS (15)
  1. SILDENAFIL CITRATE [Suspect]
     Indication: PULMONARY ARTERIAL HYPERTENSION
     Dosage: 20 MG, 2X/DAY
     Route: 048
     Dates: start: 20090205, end: 20090305
  2. SILDENAFIL CITRATE [Suspect]
     Indication: SCLERODERMA
  3. BOSENTAN [Suspect]
     Indication: PULMONARY ARTERIAL HYPERTENSION
     Dosage: 62.5 MG, 2X/DAY
     Route: 048
     Dates: start: 20080410
  4. BOSENTAN [Suspect]
     Indication: SCLERODERMA
  5. BERAPROST SODIUM [Suspect]
     Indication: PULMONARY ARTERIAL HYPERTENSION
     Dosage: 60 UG, 2X/DAY
     Route: 048
     Dates: start: 20070702
  6. BERAPROST SODIUM [Suspect]
     Indication: SCLERODERMA
  7. PREDNISOLONE [Concomitant]
     Dosage: UNK
     Route: 048
  8. TAKEPRON [Concomitant]
     Dosage: UNK
     Route: 048
  9. ALENDRONATE SODIUM [Concomitant]
     Dosage: UNK
     Route: 048
  10. MUCOSOLVAN [Concomitant]
     Dosage: UNK
     Route: 048
  11. MUCOSTA [Concomitant]
     Dosage: UNK
     Route: 048
  12. LAC B [Concomitant]
     Dosage: UNK
     Route: 048
  13. WARFARIN POTASSIUM [Concomitant]
     Dosage: UNK
     Route: 048
  14. ANPLAG [Concomitant]
     Dosage: UNK
     Route: 048
  15. LIPLE [Concomitant]
     Dosage: UNK
     Route: 042

REACTIONS (1)
  - VENTRICULAR TACHYCARDIA [None]
